FAERS Safety Report 23640439 (Version 2)
Quarter: 2024Q2

REPORT INFORMATION
  Report Type: Spontaneous
  Country: JP (occurrence: JP)
  Receive Date: 20240317
  Receipt Date: 20240422
  Transmission Date: 20240716
  Serious: Yes (Other)
  Sender: FDA-Public Use
  Company Number: JP-002147023-NVSJ2024JP002850

PATIENT
  Age: 58 Year
  Sex: Female

DRUGS (1)
  1. KESIMPTA [Suspect]
     Active Substance: OFATUMUMAB
     Indication: Secondary progressive multiple sclerosis
     Dosage: UNK
     Route: 058
     Dates: start: 202307

REACTIONS (8)
  - Multiple sclerosis relapse [Recovered/Resolved]
  - Hypoaesthesia [Recovering/Resolving]
  - Musculoskeletal stiffness [Unknown]
  - Ataxia [Recovered/Resolved]
  - Multiple sclerosis [Recovered/Resolved]
  - Urinary tract infection [Recovered/Resolved]
  - Pyrexia [Recovered/Resolved]
  - Urine abnormality [Unknown]

NARRATIVE: CASE EVENT DATE: 20240101
